FAERS Safety Report 6901762-1 (Version None)
Quarter: 2010Q3

REPORT INFORMATION
  Report Type: 
  Country: None (occurrence: None)
  Receive Date: 20100803
  Receipt Date: 20100728
  Transmission Date: 20110219
  Serious: Yes (Death, Hospitalization, Other)
  Sender: FDA-Public Use
  Company Number: FR-ELI_LILLY_AND_COMPANY-FR201007006676

PATIENT
  Sex: Male

DRUGS (2)
  1. GEMZAR [Suspect]
     Dosage: 66.7 MG, 2/M
     Route: 042
     Dates: start: 20040701, end: 20060201
  2. TAXOTERE [Concomitant]
     Indication: LUNG NEOPLASM MALIGNANT
     Dosage: UNK, UNK
     Dates: start: 20040701, end: 20041101

REACTIONS (5)
  - ENDOCARDITIS [None]
  - HAEMOLYTIC URAEMIC SYNDROME [None]
  - PULMONARY EMBOLISM [None]
  - PULMONARY OEDEMA [None]
  - STAPHYLOCOCCAL SEPSIS [None]
